FAERS Safety Report 25591247 (Version 1)
Quarter: 2025Q3

REPORT INFORMATION
  Report Type: Spontaneous
  Country: BR (occurrence: BR)
  Receive Date: 20250722
  Receipt Date: 20250722
  Transmission Date: 20251021
  Serious: Yes (Other)
  Sender: SANOFI AVENTIS
  Company Number: BR-SA-2025SA205462

PATIENT

DRUGS (1)
  1. DUPILUMAB [Suspect]
     Active Substance: DUPILUMAB
     Indication: Product used for unknown indication
     Dates: start: 2025

REACTIONS (1)
  - Lymphoma [Unknown]

NARRATIVE: CASE EVENT DATE: 20250101
